FAERS Safety Report 13907453 (Version 1)
Quarter: 2017Q3

REPORT INFORMATION
  Report Type: Spontaneous
  Country: US (occurrence: US)
  Receive Date: 20170825
  Receipt Date: 20170825
  Transmission Date: 20171127
  Serious: No
  Sender: FDA-Public Use
  Company Number: US-ROCHE-1060043

PATIENT
  Age: 4 Year
  Sex: Female

DRUGS (3)
  1. AZITHROMYCIN ANHYDROUS. [Concomitant]
     Active Substance: AZITHROMYCIN ANHYDROUS
     Indication: EAR INFECTION
     Dosage: DRUG: Z-PACK, TITRATED DAILY
     Route: 048
     Dates: start: 20120405, end: 20120409
  2. ALBUTEROL INHALER [Concomitant]
     Active Substance: ALBUTEROL
     Indication: ASTHMA
     Dosage: 2 PUFFS TWICE DAILY,
     Route: 065
  3. NUTROPIN [Suspect]
     Active Substance: SOMATROPIN
     Indication: PRODUCT USED FOR UNKNOWN INDICATION
     Dosage: DRUG: NUTROPIN NUSPIN
     Route: 058
     Dates: start: 20120411

REACTIONS (4)
  - Wheezing [Not Recovered/Not Resolved]
  - Pyrexia [Not Recovered/Not Resolved]
  - Asthma [Not Recovered/Not Resolved]
  - Cough [Not Recovered/Not Resolved]

NARRATIVE: CASE EVENT DATE: 20120411
